FAERS Safety Report 10481707 (Version 1)
Quarter: 2014Q3

REPORT INFORMATION
  Report Type: Spontaneous
  Country: US (occurrence: None)
  Receive Date: 20140908
  Receipt Date: 20140908
  Transmission Date: 20150326
  Serious: Yes (Hospitalization)
  Sender: FDA-Public Use
  Company Number: 395763

PATIENT
  Age: 72 Year
  Sex: Female
  Weight: 101.6 kg

DRUGS (2)
  1. ACE INHIBITORS [Suspect]
     Active Substance: UNSPECIFIED INGREDIENT
     Indication: PRODUCT USED FOR UNKNOWN INDICATION
  2. VICTOZA [Suspect]
     Active Substance: LIRAGLUTIDE
     Indication: TYPE 2 DIABETES MELLITUS
     Route: 058
     Dates: start: 201311

REACTIONS (1)
  - Angioedema [None]

NARRATIVE: CASE EVENT DATE: 20131217
